FAERS Safety Report 7227844-5 (Version None)
Quarter: 2011Q1

REPORT INFORMATION
  Report Type: 
  Country: None (occurrence: None)
  Receive Date: 20110114
  Receipt Date: 20101216
  Transmission Date: 20110831
  Serious: No
  Sender: FDA-Public Use
  Company Number: US-JNJFOC-20101206574

PATIENT
  Sex: Male
  Weight: 79.38 kg

DRUGS (6)
  1. INVEGA [Suspect]
     Indication: SOCIAL PHOBIA
     Route: 048
  2. VALIUM [Concomitant]
     Indication: ANXIETY
     Route: 048
  3. DEPAKOTE [Concomitant]
     Indication: AFFECT LABILITY
     Route: 048
  4. NEXIUM [Concomitant]
     Indication: GASTRITIS
     Route: 048
  5. INVEGA [Suspect]
     Indication: ANXIETY
     Route: 048
  6. TEMAZEPAM [Concomitant]
     Indication: SLEEP DISORDER
     Route: 048

REACTIONS (2)
  - GASTRITIS [None]
  - DEFAECATION URGENCY [None]
